FAERS Safety Report 20727446 (Version 1)
Quarter: 2022Q2

REPORT INFORMATION
  Report Type: Spontaneous
  Country: US (occurrence: None)
  Receive Date: 20220419
  Receipt Date: 20220419
  Transmission Date: 20220721
  Serious: No
  Sender: FDA-Public Use
  Company Number: US-ROCHE-3012341

PATIENT
  Sex: Male

DRUGS (1)
  1. XOFLUZA [Suspect]
     Active Substance: BALOXAVIR MARBOXIL
     Indication: Influenza
     Dosage: ONE DOSE TREATMENT ;ONGOING: NO, START DATE: /MAY/2021 OR /JUN/2021
     Route: 048
     Dates: start: 2021, end: 2021

REACTIONS (1)
  - Herpes zoster [Unknown]
